FAERS Safety Report 14926852 (Version 1)
Quarter: 2018Q2

REPORT INFORMATION
  Report Type: Spontaneous
  Country: FR (occurrence: FR)
  Receive Date: 20180523
  Receipt Date: 20180523
  Transmission Date: 20180711
  Serious: Yes (Hospitalization)
  Sender: FDA-Public Use
  Company Number: FR-MERCK KGAA-2048279

PATIENT
  Age: 66 Year
  Sex: Female

DRUGS (1)
  1. NOVOTHYROX [Suspect]
     Active Substance: LEVOTHYROXINE SODIUM
     Indication: PRODUCT USED FOR UNKNOWN INDICATION
     Dates: start: 20170317

REACTIONS (29)
  - Mental disorder [None]
  - Dysstasia [Recovering/Resolving]
  - Mean cell volume increased [None]
  - Depressed mood [None]
  - Fatigue [Recovering/Resolving]
  - Feeling jittery [None]
  - Fatigue [None]
  - Anxiety [None]
  - Aspartate aminotransferase increased [None]
  - Insomnia [Recovering/Resolving]
  - Tremor [None]
  - Mobility decreased [None]
  - Blood potassium increased [None]
  - Muscular weakness [None]
  - Gamma-glutamyltransferase increased [None]
  - Red blood cell sedimentation rate increased [None]
  - Low density lipoprotein increased [None]
  - Asthenia [None]
  - Weight decreased [Recovering/Resolving]
  - Malaise [Recovering/Resolving]
  - Loss of personal independence in daily activities [None]
  - Mean cell haemoglobin increased [None]
  - Anion gap increased [None]
  - Decreased interest [None]
  - Amnesia [None]
  - Feeling abnormal [None]
  - Decreased appetite [None]
  - Crying [None]
  - Sleep disorder [None]

NARRATIVE: CASE EVENT DATE: 201703
